FAERS Safety Report 9243412 (Version 1)
Quarter: 2013Q2

REPORT INFORMATION
  Report Type: Spontaneous
  Country: US (occurrence: US)
  Receive Date: 20130421
  Receipt Date: 20130421
  Transmission Date: 20140414
  Serious: Yes (Hospitalization)
  Sender: FDA-Public Use
  Company Number: US-BRISTOL-MYERS SQUIBB COMPANY-18772871

PATIENT
  Age: 77 Year
  Sex: Male
  Weight: 80 kg

DRUGS (23)
  1. COUMADIN [Suspect]
     Dosage: 27OCT11-31JAN12;15FB12-UNK(5MG)?15FB12-15FB12;26APR12-26APR12(2.5MG)
     Dates: start: 20111027
  2. CIPROFLOXACIN [Suspect]
     Indication: WOUND INFECTION
     Dates: start: 20120110, end: 20120202
  3. VANCOMYCIN [Suspect]
     Indication: WOUND INFECTION
     Dates: start: 20120110, end: 20120205
  4. LISINOPRIL [Concomitant]
     Dates: start: 201108
  5. OMEPRAZOLE [Concomitant]
     Dates: start: 2000
  6. METOPROLOL TARTRATE [Concomitant]
     Dates: start: 201110
  7. ASPIRIN [Concomitant]
     Dosage: 2010-UNK 81MG?24APR12-ONG 162MG
     Dates: start: 2010
  8. VORICONAZOLE [Concomitant]
     Dates: start: 201201
  9. DIGOXIN [Concomitant]
     Dates: start: 201110
  10. COLACE [Concomitant]
     Dates: start: 201108
  11. PRILOSEC [Concomitant]
     Dates: start: 2000
  12. ALLOPURINOL [Concomitant]
     Dosage: 2008-UNK 100MG?12JAN12-12JAN12 150MG
     Dates: start: 2008
  13. TRICOR [Concomitant]
     Dosage: 11JAN12-12JAN12?24APR12-ONG
     Dates: start: 20120111
  14. TEMAZEPAM [Concomitant]
     Dosage: 10JAN12-12JAN12
     Dates: start: 20111027
  15. DIGOXIN [Concomitant]
     Dates: start: 201110
  16. LEXAPRO [Concomitant]
     Dates: start: 20120303
  17. DOXYCYCLINE [Concomitant]
     Dates: start: 20120102, end: 20120131
  18. RINGERS SOLUTION, LACTATED [Concomitant]
     Dates: start: 20110110, end: 20120423
  19. ZOFRAN [Concomitant]
     Dates: start: 20120110, end: 20120427
  20. SODIUM CHLORIDE [Concomitant]
     Dates: start: 20120110, end: 20120427
  21. SENNA [Concomitant]
     Dosage: 2TABS
     Dates: start: 20120111, end: 20120111
  22. MIDAZOLAM MALEATE [Concomitant]
  23. PROTONIX [Concomitant]
     Dates: start: 20120111, end: 20120424

REACTIONS (2)
  - Wound infection [Recovered/Resolved]
  - Toxicity to various agents [Recovered/Resolved]
